FAERS Safety Report 5631381-9 (Version None)
Quarter: 2008Q1

REPORT INFORMATION
  Report Type: 
  Country: None (occurrence: None)
  Receive Date: 20080212
  Receipt Date: 20080131
  Transmission Date: 20080703
  Serious: Yes (Death)
  Sender: FDA-Public Use
  Company Number: CERZ-1000059

PATIENT
  Age: 90 Year
  Sex: Male
  Weight: 66.6 kg

DRUGS (1)
  1. CEREZYME [Suspect]
     Indication: GAUCHER'S DISEASE
     Dosage: 4000 U, Q3W, INTRAVENOUS
     Route: 042
     Dates: start: 20041201, end: 20071101

REACTIONS (1)
  - DEATH [None]
